FAERS Safety Report 8831891 (Version 1)
Quarter: 2012Q4

REPORT INFORMATION
  Report Type: 
  Country: CA (occurrence: CA)
  Receive Date: 20121008
  Receipt Date: 20121008
  Transmission Date: 20130627
  Serious: Yes (Hospitalization)
  Sender: FDA-Public Use
  Company Number: CA-ELI_LILLY_AND_COMPANY-CA201210000673

PATIENT
  Age: 70 Year
  Sex: Female

DRUGS (14)
  1. FORTEO [Suspect]
     Indication: OSTEOPOROSIS
     Dosage: 20 ug, qd
     Route: 058
     Dates: start: 20120425
  2. NOVORAPID [Concomitant]
  3. LANTUS [Concomitant]
  4. LYRICA [Concomitant]
  5. RATIO-RAMIPRIL [Concomitant]
  6. LIPITOR [Concomitant]
  7. PRO-QUETIAPINE [Concomitant]
  8. PANTOPRAZOLE [Concomitant]
  9. APO-CYCLOBENZAPRINE [Concomitant]
  10. SENNOSIDE [Concomitant]
  11. COLACE [Concomitant]
  12. EPIVAL [Concomitant]
  13. VITAMIN E [Concomitant]
  14. VITAMIN C [Concomitant]

REACTIONS (3)
  - Bipolar disorder [Not Recovered/Not Resolved]
  - Dyspnoea [Not Recovered/Not Resolved]
  - Pain [Not Recovered/Not Resolved]
